FAERS Safety Report 26075362 (Version 1)
Quarter: 2025Q4

REPORT INFORMATION
  Report Type: Spontaneous
  Country: CN (occurrence: CN)
  Receive Date: 20251121
  Receipt Date: 20251121
  Transmission Date: 20260118
  Serious: Yes (Hospitalization, Other)
  Sender: NOVARTIS
  Company Number: CN-002147023-NVSC2025CN176901

PATIENT
  Age: 56 Year
  Sex: Female
  Weight: 69 kg

DRUGS (3)
  1. TRILEPTAL [Suspect]
     Active Substance: OXCARBAZEPINE
     Indication: Trigeminal neuralgia
     Dosage: 300 MG, BID
     Route: 048
     Dates: start: 20251105, end: 20251108
  2. ETORICOXIB [Suspect]
     Active Substance: ETORICOXIB
     Indication: Trigeminal neuralgia
     Dosage: 60 MG, QD
     Route: 048
     Dates: start: 20251105, end: 20251108
  3. TIZANIDINE HYDROCHLORIDE [Suspect]
     Active Substance: TIZANIDINE HYDROCHLORIDE
     Indication: Trigeminal neuralgia
     Dosage: 2 MG, QD
     Route: 048
     Dates: start: 20251105, end: 20251108

REACTIONS (5)
  - Fixed eruption [Recovering/Resolving]
  - Lip swelling [Recovering/Resolving]
  - Erythema [Recovering/Resolving]
  - Pruritus [Recovering/Resolving]
  - Swelling [Recovering/Resolving]

NARRATIVE: CASE EVENT DATE: 20251105
